FAERS Safety Report 24385016 (Version 1)
Quarter: 2024Q4

REPORT INFORMATION
  Report Type: Spontaneous
  Country: US (occurrence: US)
  Receive Date: 20241001
  Receipt Date: 20241001
  Transmission Date: 20250115
  Serious: Yes (Hospitalization, Other)
  Sender: INCYTE
  Company Number: US-INCYTE CORPORATION-2024IN010262

PATIENT

DRUGS (26)
  1. JAKAFI [Suspect]
     Active Substance: RUXOLITINIB
     Indication: Chronic graft versus host disease
     Dosage: 5 MILLIGRAM, BID
     Route: 048
  2. AXATILIMAB [Suspect]
     Active Substance: AXATILIMAB
     Indication: Graft versus host disease
     Dosage: UNK
     Route: 042
     Dates: start: 20240909, end: 20240923
  3. ZOVIRAX [Concomitant]
     Active Substance: ACYCLOVIR
     Indication: Infection prophylaxis
     Dosage: 400 MILLIGRAM (ONE-HALF TABLET BY MOUTH TWICE DAILY)
     Route: 048
  4. PRESERVISION AREDS 2 + MULTIVITAMIN [Concomitant]
     Indication: Product used for unknown indication
     Dosage: 1 DOSAGE FORM, QD
     Route: 048
  5. ALPHAGAN P [Concomitant]
     Active Substance: BRIMONIDINE TARTRATE
     Indication: Product used for unknown indication
     Dosage: APPLY ONE DROP TO RIGHT EYE AS DIRECTED TWICE DAILY
     Route: 047
  6. BUMEX [Concomitant]
     Active Substance: BUMETANIDE
     Indication: Product used for unknown indication
     Dosage: 3 X 1 MILLIGRAM, BID
     Route: 048
  7. CALCIUM CITRATE [Concomitant]
     Active Substance: CALCIUM CITRATE
     Indication: Product used for unknown indication
     Dosage: 950 MILLIGRAM, QD
     Route: 048
  8. COREG [Concomitant]
     Active Substance: CARVEDILOL
     Indication: Product used for unknown indication
     Dosage: 1.5 X 12.5 MILLIGRAM, BID
     Route: 048
  9. CARDIZEM CD [Concomitant]
     Active Substance: DILTIAZEM HYDROCHLORIDE
     Indication: Product used for unknown indication
     Dosage: 2 X 120 MILLIGRAM, QD
     Route: 048
  10. DRISDOL [Concomitant]
     Active Substance: ERGOCALCIFEROL
     Indication: Product used for unknown indication
     Dosage: 1250 MICROGRAM, EVERY 7 DAYS
     Route: 048
     Dates: end: 20240921
  11. PROSCAR [Concomitant]
     Active Substance: FINASTERIDE
     Indication: Product used for unknown indication
     Dosage: 5 MILLIGRAM, QD
     Route: 048
  12. TAMBOCOR [Concomitant]
     Active Substance: FLECAINIDE ACETATE
     Indication: Atrial fibrillation
     Dosage: 50 MILLIGRAM, BID
     Route: 048
  13. CORTEF [Concomitant]
     Active Substance: HYDROCORTISONE
     Indication: Product used for unknown indication
     Dosage: 2 X 10 MILLIGRAM TABLETS EVERY MORNING AND 1 TABLET IN THE AFTERNOON
     Route: 048
  14. CORTEF [Concomitant]
     Active Substance: HYDROCORTISONE
     Dosage: 2 X 10 MILLIGRAM TABLETS EVERY MORNING AND 1 TABLET IN THE AFTERNOON
     Route: 048
     Dates: start: 20240904
  15. XALATAN [Concomitant]
     Active Substance: LATANOPROST
     Indication: Product used for unknown indication
     Dosage: APPLY ONE DROP TO RIGHT EYE AS DIRECTED AT BEDTIME DAILY
     Route: 047
  16. EMLA [Concomitant]
     Active Substance: LIDOCAINE\PRILOCAINE
     Indication: Product used for unknown indication
     Dosage: APPLY ONE G TOPICALLY TO AFFECTED AREA ONCE DAILY AS NEEDED
     Route: 061
  17. MAGNESIUM GLYCINATE [Concomitant]
     Active Substance: MAGNESIUM GLYCINATE
     Indication: Product used for unknown indication
     Dosage: 100 MILLIGRAM, QD
     Route: 048
  18. ONE A DAY [MINERALS NOS;VITAMINS NOS] [Concomitant]
     Indication: Product used for unknown indication
     Dosage: UNK, QD
     Route: 065
  19. ZOFRAN [Concomitant]
     Active Substance: ONDANSETRON HYDROCHLORIDE
     Indication: Product used for unknown indication
     Dosage: 8 MILLIGRAM, EVERY 8 HOURS AS NEEDED
     Route: 048
  20. VEETIDS [Concomitant]
     Active Substance: PENICILLIN V POTASSIUM
     Indication: Infection prophylaxis
     Dosage: 3 X 250 MILLIGRAM, BID
     Route: 048
  21. VEETIDS [Concomitant]
     Active Substance: PENICILLIN V POTASSIUM
     Dosage: 3 X 250 MILLIGRAM, BID
     Route: 048
     Dates: start: 20240722
  22. PRED FORTE [Concomitant]
     Active Substance: PREDNISOLONE ACETATE
     Indication: Product used for unknown indication
     Dosage: APPLY ONE DROP TO RIGHT EYE AS DIRECTED FOUR TIMES DAILY
     Route: 047
  23. COMPAZINE [Concomitant]
     Active Substance: PROCHLORPERAZINE MALEATE
     Indication: Nausea
     Dosage: 10 MILLIGRAM, EVERY 6 HOURS AS NEEDED
     Route: 048
  24. FLOMAX [Concomitant]
     Active Substance: TAMSULOSIN HYDROCHLORIDE
     Indication: Product used for unknown indication
     Dosage: 0.4 MILLIGRAM, QD
     Route: 048
  25. TIMOPTIC [Concomitant]
     Active Substance: TIMOLOL MALEATE
     Indication: Product used for unknown indication
     Dosage: 1 DROP, QD
     Route: 047
  26. VFEND [Concomitant]
     Active Substance: VORICONAZOLE
     Indication: Product used for unknown indication
     Dosage: 2 X 200 MILLIGRAM
     Route: 065

REACTIONS (18)
  - Hypervolaemia [Not Recovered/Not Resolved]
  - Tenderness [Not Recovered/Not Resolved]
  - Oedema blister [Not Recovered/Not Resolved]
  - Neuropathy peripheral [Not Recovered/Not Resolved]
  - Neoplasm malignant [Unknown]
  - Immunodeficiency [Unknown]
  - Myelofibrosis [Unknown]
  - Oedema peripheral [Not Recovered/Not Resolved]
  - Clostridium difficile infection [Not Recovered/Not Resolved]
  - Nephropathy [Unknown]
  - Cardiac disorder [Unknown]
  - Anxiety [Not Recovered/Not Resolved]
  - Arthritis [Unknown]
  - Gastrooesophageal reflux disease [Unknown]
  - Nicotine dependence [Unknown]
  - Deficiency anaemia [Unknown]
  - Hypertension [Unknown]
  - Sleep apnoea syndrome [Unknown]

NARRATIVE: CASE EVENT DATE: 20220101
